FAERS Safety Report 13601362 (Version 1)
Quarter: 2017Q2

REPORT INFORMATION
  Report Type: Report from Study
  Country: DE (occurrence: DE)
  Receive Date: 20170601
  Receipt Date: 20170601
  Transmission Date: 20170830
  Serious: Yes (Death, Other)
  Sender: FDA-Public Use
  Company Number: DE-MYLANLABS-2017M1032671

PATIENT

DRUGS (2)
  1. MIRTAZAPINE. [Suspect]
     Active Substance: MIRTAZAPINE
     Indication: PRODUCT USED FOR UNKNOWN INDICATION
     Route: 065
  2. PROPOFOL. [Suspect]
     Active Substance: PROPOFOL
     Indication: DRUG USE DISORDER
     Route: 065

REACTIONS (3)
  - Drug use disorder [Fatal]
  - Respiratory arrest [Fatal]
  - Completed suicide [Fatal]
